FAERS Safety Report 5893116-4 (Version None)
Quarter: 2008Q3

REPORT INFORMATION
  Report Type: 
  Country: None (occurrence: None)
  Receive Date: 20080919
  Receipt Date: 20080910
  Transmission Date: 20090109
  Serious: Yes (Death)
  Sender: FDA-Public Use
  Company Number: GXKR2008GB08714

PATIENT
  Age: 92 Year
  Sex: Female
  Weight: 60 kg

DRUGS (8)
  1. ACETYLSALICYLIC ACID SRT [Suspect]
     Indication: ACUTE CORONARY SYNDROME
     Dosage: 300 MG, TOTAL DOSAGE, ORAL, 75 MG, QD, ORAL
     Route: 048
     Dates: start: 20070403, end: 20070403
  2. ACETYLSALICYLIC ACID SRT [Suspect]
     Indication: ACUTE CORONARY SYNDROME
     Dosage: 300 MG, TOTAL DOSAGE, ORAL, 75 MG, QD, ORAL
     Route: 048
     Dates: end: 20070410
  3. DALTEPARIN SODIUM [Suspect]
     Indication: ACUTE CORONARY SYNDROME
     Dosage: 7000 IU, BID, SUBCUTANEOUS
     Route: 058
     Dates: start: 20070403
  4. FUROSEMIDE [Concomitant]
  5. GLICLAZIDE (GLICLAZIDE) [Concomitant]
  6. INSULIN HUMAN (INSULIN HUMAN) [Concomitant]
  7. PERINDOPRIL (PERINDOPRIL) [Concomitant]
  8. TRIMETHOPRIM [Concomitant]

REACTIONS (3)
  - ABDOMINAL WALL HAEMORRHAGE [None]
  - PELVIC HAEMORRHAGE [None]
  - RETROPERITONEAL HAEMORRHAGE [None]
